FAERS Safety Report 11113096 (Version 1)
Quarter: 2015Q2

REPORT INFORMATION
  Report Type: Report from Study
  Country: US (occurrence: US)
  Receive Date: 20150514
  Receipt Date: 20150514
  Transmission Date: 20150821
  Serious: Yes (Other)
  Sender: FDA-Public Use
  Company Number: PHEH2015US008634

PATIENT
  Age: 48 Year
  Sex: Male

DRUGS (2)
  1. PREDNISONE. [Concomitant]
     Active Substance: PREDNISONE
     Indication: PRODUCT USED FOR UNKNOWN INDICATION
     Route: 042
  2. GILENYA [Suspect]
     Active Substance: FINGOLIMOD HYDROCHLORIDE
     Indication: MULTIPLE SCLEROSIS
     Dosage: 0.5 MG, QD
     Route: 048
     Dates: start: 20110304

REACTIONS (11)
  - Punctate keratitis [None]
  - Astigmatism [Unknown]
  - Optic neuritis [Unknown]
  - Visual acuity reduced [Unknown]
  - Myopia [Unknown]
  - Blood cholesterol increased [Unknown]
  - Mean cell haemoglobin concentration decreased [Unknown]
  - Mean cell haemoglobin decreased [Unknown]
  - Presbyopia [Unknown]
  - Blood alkaline phosphatase decreased [Unknown]
  - Red cell distribution width increased [Unknown]

NARRATIVE: CASE EVENT DATE: 20150203
